FAERS Safety Report 8308650-7 (Version None)
Quarter: 2012Q2

REPORT INFORMATION
  Report Type: 
  Country: None (occurrence: None)
  Receive Date: 20120420
  Receipt Date: 20120413
  Transmission Date: 20120825
  Serious: Yes (Hospitalization)
  Sender: FDA-Public Use
  Company Number: 2012SP018039

PATIENT
  Age: 33 Year
  Sex: Male

DRUGS (10)
  1. MIRTAZAPINE [Suspect]
     Indication: DEPRESSION
     Dosage: 15;30 MG, QD, PO
     Route: 048
     Dates: start: 20120306, end: 20120326
  2. MIRTAZAPINE [Suspect]
     Indication: DEPRESSION
     Dosage: 15;30 MG, QD, PO
     Route: 048
     Dates: start: 20120221, end: 20120305
  3. DULOXETINE HYDROCHLORIDE [Concomitant]
  4. HYDROCHLORIDE [Concomitant]
  5. DULOXETINE HYDROCHLORIDE [Concomitant]
  6. FLUNITRAZEPAM [Concomitant]
  7. DULOXETINE HYDROCHLORIDE [Concomitant]
  8. HYDROCHLORIDE [Concomitant]
  9. HYDROCHLORIDE [Concomitant]
  10. ROHYPNOL (FLUNITRAZEPAM) [Suspect]
     Indication: DEPRESSION
     Dosage: 2 MG, QD, PO
     Route: 048
     Dates: start: 20120207, end: 20120326

REACTIONS (9)
  - MULTIPLE DRUG OVERDOSE INTENTIONAL [None]
  - SEDATION [None]
  - FALL [None]
  - CONTUSION [None]
  - TOXICITY TO VARIOUS AGENTS [None]
  - HAEMATOMA [None]
  - OXYGEN SATURATION DECREASED [None]
  - LOSS OF CONSCIOUSNESS [None]
  - SUICIDE ATTEMPT [None]
